FAERS Safety Report 21507976 (Version 2)
Quarter: 2022Q4

REPORT INFORMATION
  Report Type: Spontaneous
  Country: PL (occurrence: PL)
  Receive Date: 20221026
  Receipt Date: 20221102
  Transmission Date: 20230113
  Serious: Yes (Other)
  Sender: FDA-Public Use
  Company Number: PL-PFIZER INC-PV202200087448

PATIENT
  Age: 67 Year
  Sex: Male
  Weight: 72 kg

DRUGS (2)
  1. XELJANZ [Suspect]
     Active Substance: TOFACITINIB CITRATE
     Indication: Colitis ulcerative
     Dosage: 5 MG, 2X/DAY
     Dates: start: 20220331
  2. MESALAMINE [Concomitant]
     Active Substance: MESALAMINE
     Dosage: UNK (500)
     Dates: start: 20140510

REACTIONS (6)
  - Haematochezia [Unknown]
  - Therapeutic product effect decreased [Not Recovered/Not Resolved]
  - Mucous stools [Unknown]
  - Frequent bowel movements [Unknown]
  - Condition aggravated [Unknown]
  - Gastrointestinal pain [Unknown]

NARRATIVE: CASE EVENT DATE: 20220331
